FAERS Safety Report 20679902 (Version 3)
Quarter: 2022Q2

REPORT INFORMATION
  Report Type: Spontaneous
  Country: US (occurrence: US)
  Receive Date: 20220406
  Receipt Date: 20220509
  Transmission Date: 20220721
  Serious: Yes (Other)
  Sender: FDA-Public Use
  Company Number: US-PFIZER INC-202200521132

PATIENT
  Age: 74 Year
  Sex: Female
  Weight: 78.005 kg

DRUGS (1)
  1. TOVIAZ [Suspect]
     Active Substance: FESOTERODINE FUMARATE
     Indication: Urinary incontinence
     Dosage: 8 MG, 1X/DAY
     Dates: start: 2011

REACTIONS (3)
  - Bladder operation [Unknown]
  - Bladder disorder [Not Recovered/Not Resolved]
  - Drug ineffective [Not Recovered/Not Resolved]
